FAERS Safety Report 10161778 (Version 1)
Quarter: 2014Q2

REPORT INFORMATION
  Report Type: Spontaneous
  Country: IT (occurrence: None)
  Receive Date: 20140507
  Receipt Date: 20140507
  Transmission Date: 20141212
  Serious: Yes (Other)
  Sender: FDA-Public Use
  Company Number: 2312007

PATIENT
  Age: 62 Year
  Sex: Male

DRUGS (2)
  1. DOCETAXEL [Suspect]
     Indication: LUNG NEOPLASM
     Dosage: NOT OTHERWISE SPECIFIED
     Route: 042
     Dates: start: 20140306, end: 20140306
  2. PANTOPRAZOLE [Concomitant]

REACTIONS (5)
  - General physical health deterioration [None]
  - Aphagia [None]
  - Diarrhoea [None]
  - Nausea [None]
  - Vomiting [None]
